FAERS Safety Report 10729464 (Version 1)
Quarter: 2015Q1

REPORT INFORMATION
  Report Type: Spontaneous
  Country: US (occurrence: None)
  Receive Date: 20150121
  Receipt Date: 20150121
  Transmission Date: 20150721
  Serious: Yes (Hospitalization, Disabling)
  Sender: FDA-Public Use
  Company Number: None

PATIENT
  Age: 66 Year
  Sex: Male
  Weight: 64.5 kg

DRUGS (2)
  1. OXALIPATIN 100 MG SAGENT [Suspect]
     Active Substance: OXALIPLATIN
     Indication: RECTAL CANCER
     Route: 042
     Dates: start: 20150105
  2. OXALIPLATIN 50 MG SUN [Suspect]
     Active Substance: OXALIPLATIN
     Indication: RECTAL CANCER
     Route: 042
     Dates: start: 20150105

REACTIONS (1)
  - Atonic urinary bladder [None]

NARRATIVE: CASE EVENT DATE: 20150119
